FAERS Safety Report 8084521-9 (Version None)
Quarter: 2012Q1

REPORT INFORMATION
  Report Type: 
  Country: None (occurrence: None)
  Receive Date: 20120128
  Receipt Date: 20110331
  Transmission Date: 20120608
  Serious: No
  Sender: FDA-Public Use
  Company Number: US-ABBOTT-11P-163-0716713-00

PATIENT
  Age: 30 Year
  Sex: Female

DRUGS (9)
  1. ASCORBIC ACID [Concomitant]
     Indication: VITAMIN SUPPLEMENTATION
  2. MULTI-VITAMINS [Concomitant]
     Indication: BREAST FEEDING
  3. VITAMIN B-12 [Concomitant]
     Indication: VITAMIN SUPPLEMENTATION
  4. HUMIRA [Suspect]
     Indication: CROHN'S DISEASE
     Route: 058
     Dates: start: 20101201
  5. FISH OIL [Concomitant]
     Indication: MEDICAL DIET
  6. MIRALAX [Concomitant]
     Indication: CROHN'S DISEASE
  7. FOLIC ACID [Concomitant]
     Indication: VITAMIN SUPPLEMENTATION
  8. ASACOL [Concomitant]
     Indication: CROHN'S DISEASE
  9. VITAMIN D [Concomitant]
     Indication: VITAMIN SUPPLEMENTATION

REACTIONS (2)
  - INJECTION SITE PAPULE [None]
  - INJECTION SITE PRURITUS [None]
